FAERS Safety Report 17132163 (Version 1)
Quarter: 2019Q4

REPORT INFORMATION
  Report Type: Spontaneous
  Country: DE (occurrence: DE)
  Receive Date: 20191210
  Receipt Date: 20191210
  Transmission Date: 20200122
  Serious: Yes (Other)
  Sender: FDA-Public Use
  Company Number: NVSC2019DE059475

PATIENT
  Sex: Female
  Weight: 59 kg

DRUGS (4)
  1. BRIMONIDINE TARTRATE. [Suspect]
     Active Substance: BRIMONIDINE TARTRATE
     Dosage: 1 GTT, Q24H (0-0-1)
     Route: 047
     Dates: start: 20190905
  2. CALCEVIT [Concomitant]
     Indication: OSTEOPOROSIS
     Dosage: 1 DF, QD
     Route: 065
  3. ELIQUIS [Concomitant]
     Active Substance: APIXABAN
     Indication: PRODUCT USED FOR UNKNOWN INDICATION
     Dosage: 5 MG, Q12H (1-0-1)
     Route: 065
  4. BRIMONIDINE TARTRATE. [Suspect]
     Active Substance: BRIMONIDINE TARTRATE
     Indication: INTRAOCULAR PRESSURE INCREASED
     Dosage: 2 GTT, Q12H (1-0-1)
     Route: 047
     Dates: start: 20190607, end: 20190904

REACTIONS (5)
  - Vision blurred [Recovering/Resolving]
  - Fatigue [Recovering/Resolving]
  - Syncope [Recovered/Resolved]
  - Condition aggravated [Recovering/Resolving]
  - Dizziness [Recovering/Resolving]

NARRATIVE: CASE EVENT DATE: 20190607
